FAERS Safety Report 14267593 (Version 1)
Quarter: 2017Q4

REPORT INFORMATION
  Report Type: Spontaneous
  Country: US (occurrence: US)
  Receive Date: 20171211
  Receipt Date: 20171211
  Transmission Date: 20180321
  Serious: No
  Sender: FDA-Public Use
  Company Number: US-ROCHE-1875154

PATIENT
  Sex: Female

DRUGS (26)
  1. IBRANCE [Suspect]
     Active Substance: PALBOCICLIB
     Indication: BREAST CANCER
     Dosage: FOR 21 DAYS THEN OFF 7 DAYS THEN REPEAT CYCLE
     Route: 048
     Dates: start: 20161122
  2. VITAMIN B COMPLEX [Concomitant]
     Active Substance: CYANOCOBALAMIN\DEXPANTHENOL\NIACINAMIDE\PYRIDOXINE HYDROCHLORIDE\RIBOFLAVIN 5^-PHOSPHATE SODIUM\THIAMINE HYDROCHLORIDE\VITAMIN B COMPLEX
     Dosage: 1 TABLET
     Route: 048
  3. FOLATE [Concomitant]
     Active Substance: FOLATE SODIUM
     Route: 065
  4. ALPHA LIPOIC ACID [Concomitant]
     Active Substance: .ALPHA.-LIPOIC ACID
     Route: 048
  5. THYROID COMPLEX [Concomitant]
     Dosage: 165 GRAINS
     Route: 065
     Dates: start: 20130204
  6. ZOFRAN [Concomitant]
     Active Substance: ONDANSETRON HYDROCHLORIDE
     Route: 048
  7. BLACK SEED [Concomitant]
     Active Substance: UNSPECIFIED INGREDIENT
     Route: 048
     Dates: end: 20160606
  8. TUSSIONEX PENNKINETIC [Concomitant]
     Active Substance: CHLORPHENIRAMINE\HYDROCODONE
     Route: 048
     Dates: start: 20161205
  9. ARIMIDEX [Concomitant]
     Active Substance: ANASTROZOLE
     Route: 048
     Dates: end: 20161121
  10. BLACK SEED OIL [Concomitant]
     Route: 048
     Dates: end: 20160606
  11. FASLODEX [Concomitant]
     Active Substance: FULVESTRANT
     Route: 030
     Dates: end: 20160406
  12. MUCINEX [Concomitant]
     Active Substance: GUAIFENESIN
     Route: 048
     Dates: start: 20161205
  13. VITAMIN B COMPLEX [Concomitant]
     Active Substance: CYANOCOBALAMIN\DEXPANTHENOL\NIACINAMIDE\PYRIDOXINE HYDROCHLORIDE\RIBOFLAVIN 5^-PHOSPHATE SODIUM\THIAMINE HYDROCHLORIDE\VITAMIN B COMPLEX
     Dosage: WITH GARDEN LIFE
     Route: 065
  14. B12-ACTIVE [Concomitant]
     Dosage: CHEWABLE TABLETS
     Route: 048
     Dates: start: 20130204, end: 20160606
  15. CINNAMON. [Concomitant]
     Active Substance: CINNAMON
     Route: 048
     Dates: end: 20150420
  16. CODEINE [Concomitant]
     Active Substance: CODEINE
  17. VALIUM [Suspect]
     Active Substance: DIAZEPAM
     Indication: PRODUCT USED FOR UNKNOWN INDICATION
     Route: 065
  18. LASIX [Concomitant]
     Active Substance: FUROSEMIDE
     Route: 048
  19. CHASTETREE [Concomitant]
     Route: 065
     Dates: end: 20130401
  20. GLUTATHIONE [Concomitant]
     Active Substance: GLUTATHIONE
     Route: 065
  21. BIOTIN [Concomitant]
     Active Substance: BIOTIN
     Route: 048
  22. BUPROPION HCL ER [Concomitant]
     Active Substance: BUPROPION HYDROCHLORIDE
     Route: 048
     Dates: end: 20160201
  23. HEMP OIL [Concomitant]
     Active Substance: CANNABIS SATIVA SEED OIL
     Dosage: 1 LIQUID ORAL
     Route: 048
     Dates: start: 20161206
  24. LETROZOLE. [Concomitant]
     Active Substance: LETROZOLE
     Route: 048
     Dates: start: 20161222
  25. ASHWAGANDHA [Concomitant]
     Active Substance: HERBALS
     Dosage: POWDER DAILY
     Route: 065
     Dates: end: 20161102
  26. FULVESTRANT. [Concomitant]
     Active Substance: FULVESTRANT
     Route: 030
     Dates: start: 20130318, end: 20131028

REACTIONS (1)
  - Drug hypersensitivity [Unknown]
